FAERS Safety Report 8043048-0 (Version None)
Quarter: 2012Q1

REPORT INFORMATION
  Report Type: 
  Country: None (occurrence: None)
  Receive Date: 20120112
  Receipt Date: 20120104
  Transmission Date: 20120608
  Serious: Yes (Hospitalization)
  Sender: FDA-Public Use
  Company Number: FR-SANOFI-AVENTIS-2012SA001442

PATIENT
  Age: 62 Year
  Sex: Male

DRUGS (11)
  1. VENLAFAXINE [Suspect]
     Route: 048
     Dates: start: 20100119, end: 20100217
  2. GLICLAZIDE [Suspect]
     Indication: DIABETES MELLITUS
     Route: 048
     Dates: start: 20100401, end: 20100420
  3. PERMIXON [Suspect]
     Route: 048
     Dates: start: 20090201
  4. AMLODIPINE BESYLATE [Suspect]
     Route: 048
     Dates: start: 20090201
  5. TRAMADOL HCL [Suspect]
     Route: 048
     Dates: start: 20100101
  6. OFORTA [Suspect]
     Route: 048
     Dates: start: 20090801, end: 20091201
  7. FLUCONAZOLE [Suspect]
     Route: 065
     Dates: start: 20100311, end: 20100317
  8. KETOPROFEN [Suspect]
     Route: 048
     Dates: start: 20100101
  9. SULFAMETHOXAZOLE [Suspect]
     Dosage: 800/160 MG DAILY
     Route: 048
     Dates: start: 20091208, end: 20091222
  10. ROSUVASTATIN [Suspect]
     Route: 048
     Dates: start: 20070101
  11. LYRICA [Suspect]
     Route: 048
     Dates: start: 20100101

REACTIONS (1)
  - HEPATITIS [None]
